FAERS Safety Report 24913959 (Version 1)
Quarter: 2025Q1

REPORT INFORMATION
  Report Type: Spontaneous
  Country: NO (occurrence: NO)
  Receive Date: 20250202
  Receipt Date: 20250202
  Transmission Date: 20250409
  Serious: Yes (Death, Other)
  Sender: CIPLA
  Company Number: NO-NOMAADVRE-RELISN-2024-Vamrkx

PATIENT

DRUGS (3)
  1. RIVAROXABAN [Suspect]
     Active Substance: RIVAROXABAN
     Indication: Atrial fibrillation
     Dosage: 15 MILLIGRAM, QD
     Route: 048
     Dates: start: 20240808
  2. AMLODIPINE [Concomitant]
     Active Substance: AMLODIPINE BESYLATE
     Indication: Hypertension
     Dosage: 5 MILLIGRAM, QD
     Route: 065
  3. LOSARTAN KRKA [LOSARTAN] [Concomitant]
     Indication: Hypertension
     Dosage: 50 MILLIGRAM, QD
     Route: 065

REACTIONS (1)
  - Aortic aneurysm rupture [Fatal]

NARRATIVE: CASE EVENT DATE: 20241208
